FAERS Safety Report 13413296 (Version 3)
Quarter: 2019Q4

REPORT INFORMATION
  Report Type: Spontaneous
  Country: US (occurrence: US)
  Receive Date: 20170406
  Receipt Date: 20191122
  Transmission Date: 20200122
  Serious: No
  Sender: FDA-Public Use
  Company Number: US-JNJFOC-20170312461

PATIENT
  Sex: Male

DRUGS (3)
  1. RISPERDAL [Suspect]
     Active Substance: RISPERIDONE
     Dosage: VARYING DOSING FROM 1 MG, 3 MG AND 4 MG.
     Route: 048
     Dates: start: 20041202, end: 20060330
  2. RISPERDAL [Suspect]
     Active Substance: RISPERIDONE
     Indication: ANXIETY
     Route: 048
     Dates: start: 20060330
  3. RISPERDAL [Suspect]
     Active Substance: RISPERIDONE
     Indication: ACUTE PSYCHOSIS
     Route: 048
     Dates: start: 20041202, end: 20050103

REACTIONS (2)
  - Emotional distress [Unknown]
  - Gynaecomastia [Unknown]
